FAERS Safety Report 9800153 (Version 2)
Quarter: 2014Q1

REPORT INFORMATION
  Report Type: Spontaneous
  Country: US (occurrence: US)
  Receive Date: 20140106
  Receipt Date: 20140115
  Transmission Date: 20141002
  Serious: Yes (Hospitalization, Other)
  Sender: FDA-Public Use
  Company Number: US-GILEAD-2014-0091096

PATIENT
  Sex: Female

DRUGS (2)
  1. LETAIRIS [Suspect]
     Indication: PULMONARY HYPERTENSION
     Dosage: 10 MG, UNK
     Route: 065
  2. LETAIRIS [Suspect]
     Indication: INTERSTITIAL LUNG DISEASE

REACTIONS (4)
  - Cardiac failure congestive [Unknown]
  - Pneumonia [Unknown]
  - Wheezing [Unknown]
  - Cough [Unknown]
